FAERS Safety Report 9130368 (Version 1)
Quarter: 2013Q1

REPORT INFORMATION
  Report Type: Report from Study
  Country: US (occurrence: US)
  Receive Date: 20130228
  Receipt Date: 20130228
  Transmission Date: 20140127
  Serious: No
  Sender: FDA-Public Use
  Company Number: US-ABBOTT-13P-163-1049882-00

PATIENT
  Age: 46 Year
  Sex: Male
  Weight: 106.69 kg

DRUGS (5)
  1. ANDROGEL [Suspect]
     Indication: BLOOD TESTOSTERONE DECREASED
     Dosage: 2 PUMPS DAILY
     Route: 061
     Dates: start: 201208
  2. COLON CLEANSERS [Concomitant]
     Indication: PRODUCT USED FOR UNKNOWN INDICATION
  3. TUALIN [Concomitant]
     Indication: BODY FAT DISORDER
  4. SAL PALMETTO COMPLEX [Concomitant]
     Indication: PROSTATIC DISORDER
  5. VITAMIN D3 [Concomitant]
     Indication: VITAMIN SUPPLEMENTATION

REACTIONS (5)
  - Weight increased [Not Recovered/Not Resolved]
  - Joint swelling [Recovered/Resolved]
  - Arthralgia [Not Recovered/Not Resolved]
  - Arthralgia [Not Recovered/Not Resolved]
  - Pruritus [Recovered/Resolved]
